FAERS Safety Report 12390393 (Version 1)
Quarter: 2016Q2

REPORT INFORMATION
  Report Type: Report from Study
  Country: US (occurrence: US)
  Receive Date: 20160520
  Receipt Date: 20160520
  Transmission Date: 20160815
  Serious: No
  Sender: FDA-Public Use
  Company Number: US-MDT-ADR-2016-00294

PATIENT
  Age: 59 Year
  Sex: Female

DRUGS (3)
  1. DILAUDID [Suspect]
     Active Substance: HYDROMORPHONE HYDROCHLORIDE
     Dosage: 4.0033 MG/DAY
     Route: 037
     Dates: start: 20150504
  2. BACLOFEN. [Suspect]
     Active Substance: BACLOFEN
     Dosage: 64.498 MCG/DAY
     Route: 037
     Dates: start: 20150504
  3. BUPIVACAINE. [Suspect]
     Active Substance: BUPIVACAINE
     Dosage: 4.2702 MG/DAY
     Route: 037
     Dates: start: 20150504

REACTIONS (1)
  - Implant site extravasation [Recovered/Resolved]
